FAERS Safety Report 10970073 (Version 1)
Quarter: 2015Q1

REPORT INFORMATION
  Report Type: Spontaneous
  Country: US (occurrence: None)
  Receive Date: 20150330
  Receipt Date: 20150330
  Transmission Date: 20150721
  Serious: Yes (Disabling)
  Sender: FDA-Public Use
  Company Number: None

PATIENT
  Age: 66 Year
  Sex: Male
  Weight: 95.26 kg

DRUGS (3)
  1. DEXILANT [Suspect]
     Active Substance: DEXLANSOPRAZOLE
     Route: 048
     Dates: start: 20150203, end: 20150310
  2. ATENOLOL. [Concomitant]
     Active Substance: ATENOLOL
  3. CENTRUM SILVER [Concomitant]
     Active Substance: VITAMINS

REACTIONS (1)
  - Tremor [None]
